FAERS Safety Report 13517174 (Version 1)
Quarter: 2017Q2

REPORT INFORMATION
  Report Type: Spontaneous
  Country: GB (occurrence: GB)
  Receive Date: 20170505
  Receipt Date: 20170505
  Transmission Date: 20170830
  Serious: Yes (Hospitalization, Other)
  Sender: FDA-Public Use
  Company Number: GB-TORRENT-00015215

PATIENT
  Age: 68 Year
  Sex: Female

DRUGS (14)
  1. EZETROL [Concomitant]
     Active Substance: EZETIMIBE
  2. ALLOPURINOL. [Concomitant]
     Active Substance: ALLOPURINOL
  3. REPLAGAL [Concomitant]
     Active Substance: AGALSIDASE ALFA
  4. ATORVASTATIN [Concomitant]
     Active Substance: ATORVASTATIN
  5. LANTHANUM CARBONATE. [Concomitant]
     Active Substance: LANTHANUM CARBONATE
  6. OMEPRAZOLE. [Concomitant]
     Active Substance: OMEPRAZOLE
  7. CITALOPRAM [Suspect]
     Active Substance: CITALOPRAM HYDROBROMIDE
  8. LORATADINE. [Suspect]
     Active Substance: LORATADINE
  9. EMLA [Concomitant]
     Active Substance: LIDOCAINE\PRILOCAINE
  10. ADCAL [Concomitant]
     Active Substance: CALCIUM CARBONATE
  11. FUROSEMIDE. [Concomitant]
     Active Substance: FUROSEMIDE
  12. AMLODIPINE [Suspect]
     Active Substance: AMLODIPINE BESYLATE
  13. ASPIRIN. [Suspect]
     Active Substance: ASPIRIN
  14. DOCUSATE SODIUM. [Concomitant]
     Active Substance: DOCUSATE SODIUM

REACTIONS (1)
  - Peritonitis [Recovering/Resolving]
